FAERS Safety Report 8062270-0 (Version None)
Quarter: 2012Q1

REPORT INFORMATION
  Report Type: 
  Country: None (occurrence: None)
  Receive Date: 20120123
  Receipt Date: 20120119
  Transmission Date: 20120608
  Serious: Yes (Death, Hospitalization)
  Sender: FDA-Public Use
  Company Number: FR-AMGEN-FRASP2012003760

PATIENT

DRUGS (2)
  1. ANTINEOPLASTIC AGENTS [Concomitant]
     Indication: ACUTE MYELOID LEUKAEMIA
  2. NEULASTA [Suspect]
     Indication: CHEMOTHERAPY

REACTIONS (2)
  - BLAST CELL COUNT INCREASED [None]
  - BLAST CELL CRISIS [None]
